FAERS Safety Report 5201979-0 (Version None)
Quarter: 2007Q1

REPORT INFORMATION
  Report Type: 
  Country: None (occurrence: None)
  Receive Date: 20070109
  Receipt Date: 20070104
  Transmission Date: 20070707
  Serious: Yes (Hospitalization)
  Sender: FDA-Public Use
  Company Number: US-SHR-US-2004-040263

PATIENT
  Age: 34 Year
  Sex: Female
  Weight: 60 kg

DRUGS (6)
  1. BETASERON [Suspect]
     Indication: RELAPSING-REMITTING MULTIPLE SCLEROSIS
     Dates: start: 20031129, end: 20040927
  2. CLARITIN [Concomitant]
     Dates: end: 20040927
  3. FLONASE [Concomitant]
     Dates: end: 20040927
  4. FOSAMAX [Concomitant]
     Dates: end: 20040927
  5. VITAMIN B COMPLEX CAP [Concomitant]
     Dates: end: 20040927
  6. VITAMIN D [Concomitant]
     Dates: end: 20040927

REACTIONS (5)
  - ANAEMIA [None]
  - CHEST PAIN [None]
  - HAEMOLYTIC URAEMIC SYNDROME [None]
  - RENAL FAILURE CHRONIC [None]
  - THROMBOCYTOPENIA [None]
